FAERS Safety Report 12412050 (Version 2)
Quarter: 2016Q3

REPORT INFORMATION
  Report Type: Spontaneous
  Country: US (occurrence: US)
  Receive Date: 20160527
  Receipt Date: 20160729
  Transmission Date: 20161109
  Serious: Yes (Hospitalization, Other)
  Sender: FDA-Public Use
  Company Number: US-PFIZER INC-2016272874

PATIENT
  Age: 27 Year
  Sex: Female

DRUGS (7)
  1. DEPO-PROVERA [Suspect]
     Active Substance: MEDROXYPROGESTERONE ACETATE
     Dosage: 150 MGL, 150 MG PER ML IN RIGHT ARM
  2. DEPO-PROVERA [Suspect]
     Active Substance: MEDROXYPROGESTERONE ACETATE
     Dosage: UNK
     Dates: start: 2005
  3. DEPO-PROVERA [Suspect]
     Active Substance: MEDROXYPROGESTERONE ACETATE
     Dosage: UNK
  4. DEPO-PROVERA [Suspect]
     Active Substance: MEDROXYPROGESTERONE ACETATE
     Indication: CONTRACEPTION
     Dosage: 150 MG, UNK
     Route: 058
  5. DEPO-PROVERA [Suspect]
     Active Substance: MEDROXYPROGESTERONE ACETATE
     Dosage: 150 MG, 150 MG PER ML IN RIGHT ARM
  6. DEPO-PROVERA [Suspect]
     Active Substance: MEDROXYPROGESTERONE ACETATE
     Dosage: UNK
  7. DEPO-PROVERA [Suspect]
     Active Substance: MEDROXYPROGESTERONE ACETATE
     Dosage: 150 MG, 150 MG PER ML IN RIGHT ARM
     Route: 058

REACTIONS (28)
  - Weight fluctuation [Unknown]
  - Depression [Unknown]
  - Suicidal ideation [Not Recovered/Not Resolved]
  - Homicidal ideation [Recovered/Resolved]
  - Breast mass [Not Recovered/Not Resolved]
  - Amenorrhoea [Recovering/Resolving]
  - Visual impairment [Not Recovered/Not Resolved]
  - Activities of daily living impaired [Unknown]
  - Bone loss [Unknown]
  - Skin odour abnormal [Not Recovered/Not Resolved]
  - Eye irritation [Not Recovered/Not Resolved]
  - Irritability [Not Recovered/Not Resolved]
  - Hyperhidrosis [Unknown]
  - Bone disorder [Not Recovered/Not Resolved]
  - Alopecia [Unknown]
  - Amnesia [Not Recovered/Not Resolved]
  - Migraine [Not Recovered/Not Resolved]
  - Peripheral coldness [Not Recovered/Not Resolved]
  - Feeling hot [Not Recovered/Not Resolved]
  - Bone pain [Not Recovered/Not Resolved]
  - Menorrhagia [Not Recovered/Not Resolved]
  - Dry eye [Not Recovered/Not Resolved]
  - Skin discolouration [Unknown]
  - Calcium deficiency [Unknown]
  - Incorrect route of drug administration [Unknown]
  - Infertility female [Not Recovered/Not Resolved]
  - Back pain [Not Recovered/Not Resolved]
  - Anxiety [Not Recovered/Not Resolved]

NARRATIVE: CASE EVENT DATE: 2011
